FAERS Safety Report 6614082-X (Version None)
Quarter: 2010Q1

REPORT INFORMATION
  Report Type: 
  Country: None (occurrence: None)
  Receive Date: 20100303
  Receipt Date: 20100303
  Transmission Date: 20100710
  Serious: No
  Sender: FDA-Public Use
  Company Number: None

PATIENT
  Age: 54 Year
  Sex: Female
  Weight: 99.7913 kg

DRUGS (2)
  1. ZOLPIDEM [Suspect]
     Indication: INSOMNIA
     Dosage: ONE TAB QHS PO
     Route: 048
     Dates: start: 20091201, end: 20100131
  2. ZOLPIDEM [Suspect]
     Indication: POST-TRAUMATIC STRESS DISORDER
     Dosage: ONE TAB QHS PO
     Route: 048
     Dates: start: 20091201, end: 20100131

REACTIONS (2)
  - DRUG EFFECT DECREASED [None]
  - PRODUCT SUBSTITUTION ISSUE [None]
